FAERS Safety Report 13564402 (Version 3)
Quarter: 2018Q4

REPORT INFORMATION
  Report Type: Spontaneous
  Country: US (occurrence: US)
  Receive Date: 20170519
  Receipt Date: 20181108
  Transmission Date: 20190204
  Serious: No
  Sender: FDA-Public Use
  Company Number: US-PFIZER INC-2017210981

PATIENT
  Age: 60 Year
  Sex: Female
  Weight: 110.2 kg

DRUGS (51)
  1. GABAPENTIN. [Concomitant]
     Active Substance: GABAPENTIN
     Indication: NEURALGIA
     Dosage: 300 MG, 3X/DAY
     Route: 048
     Dates: start: 20170330
  2. DILAUDID [Concomitant]
     Active Substance: HYDROMORPHONE HYDROCHLORIDE
     Indication: HEADACHE
     Dosage: UNK
  3. VALACYCLOVIR [Concomitant]
     Active Substance: VALACYCLOVIR HYDROCHLORIDE
     Dosage: UNK
  4. DIAZEPAM. [Concomitant]
     Active Substance: DIAZEPAM
     Dosage: 5 MG, 3X/DAY (8HR)
     Route: 048
  5. MIRALAX [Concomitant]
     Active Substance: POLYETHYLENE GLYCOL 3350
     Dosage: UNK
  6. CYMBALTA [Suspect]
     Active Substance: DULOXETINE HYDROCHLORIDE
     Dosage: 60 MG, DAILY
  7. HYDROMORPHONE [Concomitant]
     Active Substance: HYDROMORPHONE
     Indication: PAIN
     Dosage: 4 MG, AS NEEDED (Q4HR)
  8. IBUPROFEN. [Concomitant]
     Active Substance: IBUPROFEN
     Dosage: 600 MG, AS NEEDED (Q6HR)
     Route: 048
  9. LORAZEPAM. [Concomitant]
     Active Substance: LORAZEPAM
     Dosage: 1 MG, AS NEEDED (TID)
     Route: 048
  10. SIMVASTATIN. [Concomitant]
     Active Substance: SIMVASTATIN
     Indication: HYPERLIPIDAEMIA
     Dosage: UNK
  11. CYMBALTA [Suspect]
     Active Substance: DULOXETINE HYDROCHLORIDE
     Indication: POST HERPETIC NEURALGIA
     Dosage: UNK
  12. ATORVASTATIN [Concomitant]
     Active Substance: ATORVASTATIN
     Indication: BLOOD CHOLESTEROL ABNORMAL
     Dosage: 20 MG, 1X/DAY
     Route: 048
     Dates: start: 2016
  13. CODEINE AND GUAIFENESIN [Concomitant]
     Active Substance: CODEINE\GUAIFENESIN
     Dosage: 10 ML, UNK
     Route: 048
  14. DULOXETINE. [Concomitant]
     Active Substance: DULOXETINE
     Indication: NEURALGIA
     Dosage: 60 MG, 1X/DAY
     Route: 048
  15. MEDROL [Concomitant]
     Active Substance: METHYLPREDNISOLONE
     Dosage: 4 MG, UNK
  16. SINEMET [Concomitant]
     Active Substance: CARBIDOPA\LEVODOPA
     Dosage: 1 DF, 2X/DAY
  17. CAMBIA [Concomitant]
     Active Substance: DICLOFENAC POTASSIUM
     Indication: HEADACHE
     Dosage: 50 MG, 1X/DAY
     Route: 048
  18. LIDOCAINE. [Concomitant]
     Active Substance: LIDOCAINE
     Dosage: UNK
  19. ACETAMINOPHEN W/OXYCODONE [Concomitant]
     Active Substance: ACETAMINOPHEN\OXYCODONE HYDROCHLORIDE
     Dosage: UNK, AS NEEDED (Q6HR)
     Route: 048
  20. LYRICA [Suspect]
     Active Substance: PREGABALIN
     Indication: PAIN
     Dosage: UNK, LOW DOSE
     Route: 048
  21. LOSARTAN. [Concomitant]
     Active Substance: LOSARTAN
     Indication: BLOOD PRESSURE MANAGEMENT
     Dosage: 100 MG, 1X/DAY
     Route: 048
     Dates: start: 2016
  22. TOPIRAMATE. [Concomitant]
     Active Substance: TOPIRAMATE
     Indication: HEADACHE
     Dosage: 50 MG, 2X/DAY
     Route: 048
     Dates: start: 2016
  23. TIZANIDINE. [Concomitant]
     Active Substance: TIZANIDINE
     Dosage: 12 MG, 1X/DAY (UP TO 12 MG AT NIGHT)
     Dates: start: 2016
  24. ZITHROMAX [Concomitant]
     Active Substance: AZITHROMYCIN DIHYDRATE
     Indication: NASAL CONGESTION
  25. ALBUTEROL. [Concomitant]
     Active Substance: ALBUTEROL
     Indication: WHEEZING
     Dosage: UNK, AS NEEDED
     Route: 045
  26. COMBIVENT RESPIMAT [Concomitant]
     Active Substance: ALBUTEROL SULFATE\IPRATROPIUM BROMIDE
     Dosage: 1 DF, 4X/DAY
  27. DULOXETINE. [Concomitant]
     Active Substance: DULOXETINE
     Dosage: 60 MG, 2X/DAY
     Route: 048
     Dates: start: 2016
  28. PLAVIX [Concomitant]
     Active Substance: CLOPIDOGREL BISULFATE
     Dosage: 75 MG, 1X/DAY
     Route: 048
  29. LACTULOSE. [Concomitant]
     Active Substance: LACTULOSE
     Dosage: UNK UNK, AS NEEDED (QDAY)
  30. ACICLOVIR [Concomitant]
     Active Substance: ACYCLOVIR
     Dosage: 200 MG, UNK
     Route: 048
  31. LYRICA [Suspect]
     Active Substance: PREGABALIN
     Dosage: 200 MG, 1X/DAY
     Route: 048
  32. LYRICA [Suspect]
     Active Substance: PREGABALIN
     Dosage: 200 MG, 3X/DAY(AS NEEDED)
     Dates: start: 201607
  33. ZITHROMAX [Concomitant]
     Active Substance: AZITHROMYCIN DIHYDRATE
     Indication: COUGH
     Dosage: UNK
  34. ASA [Concomitant]
     Active Substance: ASPIRIN
     Dosage: UNK
  35. LYRICA [Suspect]
     Active Substance: PREGABALIN
     Dosage: 900 MG, UNK
  36. AZITHROMYCIN ANHYDROUS. [Concomitant]
     Active Substance: AZITHROMYCIN ANHYDROUS
     Dosage: 250 MG, UNK  (5 DAY)
     Route: 048
  37. CARBIDOPA/LEVODOPA [Concomitant]
     Indication: CEREBROVASCULAR ACCIDENT
     Dosage: 2 DF, DAILY
     Route: 048
     Dates: start: 201610
  38. NUEDEXTA [Concomitant]
     Active Substance: DEXTROMETHORPHAN HYDROBROMIDE\QUINIDINE SULFATE
     Indication: MOOD SWINGS
     Dosage: UNK, 1X/DAY
  39. NUEDEXTA [Concomitant]
     Active Substance: DEXTROMETHORPHAN HYDROBROMIDE\QUINIDINE SULFATE
     Dosage: UNK, 2X/DAY
     Route: 048
     Dates: start: 2016
  40. CLOPIDOGREL [Concomitant]
     Active Substance: CLOPIDOGREL BISULFATE
     Indication: BLOOD CHOLESTEROL ABNORMAL
     Dosage: 75 MG, 1X/DAY
     Route: 048
     Dates: start: 2016
  41. AMLODIPINE BESYLATE. [Concomitant]
     Active Substance: AMLODIPINE BESYLATE
     Indication: BLOOD PRESSURE MANAGEMENT
     Dosage: 5 MG, 1X/DAY
     Route: 048
     Dates: start: 2016
  42. TIZANIDINE. [Concomitant]
     Active Substance: TIZANIDINE
     Indication: SLEEP DISORDER
     Dosage: 6 MG, 1X/DAY (QHS)
     Route: 048
  43. TIZANIDINE. [Concomitant]
     Active Substance: TIZANIDINE
     Dosage: 12 MG, DAILY
  44. NYSTATIN. [Concomitant]
     Active Substance: NYSTATIN
     Indication: CANDIDA INFECTION
     Dosage: 1 DF, 3X/DAY (100000 UNITS/GM, 1 APPL, 3X/DAY)
     Route: 061
  45. BAYER LOW DOSE [Concomitant]
     Active Substance: ASPIRIN
     Dosage: 81 MG, 1X/DAY
     Route: 048
  46. FLUOCINONIDE. [Concomitant]
     Active Substance: FLUOCINONIDE
     Dosage: UNK UNK, 2X/DAY
     Route: 061
  47. LYRICA [Suspect]
     Active Substance: PREGABALIN
     Indication: COMPLEX REGIONAL PAIN SYNDROME
     Dosage: 200 MG, 3X/DAY (AS NEEDED)
     Route: 048
     Dates: start: 20170329
  48. HYDROCHLOROTHIAZIDE. [Concomitant]
     Active Substance: HYDROCHLOROTHIAZIDE
     Indication: FLUID RETENTION
     Dosage: 25 MG, 1X/DAY
     Route: 048
     Dates: start: 2016
  49. ALBUTEROL. [Concomitant]
     Active Substance: ALBUTEROL
     Dosage: 3ML, INH, EVERY 6 HOURS
  50. DULOXETINE. [Concomitant]
     Active Substance: DULOXETINE
     Dosage: 30 MG, 1X/DAY
     Route: 048
  51. CARBIDOPA/LEVODOPA [Concomitant]
     Indication: TREMOR
     Dosage: UNK, 2X/DAY
     Route: 048
     Dates: start: 201610

REACTIONS (10)
  - Intentional product misuse [Unknown]
  - Drug ineffective [Unknown]
  - Intentional product use issue [Unknown]
  - Withdrawal syndrome [Unknown]
  - Nasopharyngitis [Unknown]
  - Overdose [Unknown]
  - Breakthrough pain [Unknown]
  - Pain in extremity [Unknown]
  - Burning sensation [Unknown]
  - Weight decreased [Unknown]

NARRATIVE: CASE EVENT DATE: 20171004
